FAERS Safety Report 25085657 (Version 4)
Quarter: 2025Q3

REPORT INFORMATION
  Report Type: Spontaneous
  Country: US (occurrence: US)
  Receive Date: 20250317
  Receipt Date: 20250825
  Transmission Date: 20251020
  Serious: No
  Sender: MERCK SHARP & DOHME LLC
  Company Number: US-009507513-2258494

PATIENT
  Age: 51 Year
  Sex: Female
  Weight: 77.1 kg

DRUGS (49)
  1. WINREVAIR [Suspect]
     Active Substance: SOTATERCEPT-CSRK
     Indication: Product used for unknown indication
     Dates: start: 2024
  2. WINREVAIR [Suspect]
     Active Substance: SOTATERCEPT-CSRK
     Dates: start: 20250123
  3. WINREVAIR [Suspect]
     Active Substance: SOTATERCEPT-CSRK
  4. WINREVAIR [Suspect]
     Active Substance: SOTATERCEPT-CSRK
  5. ORENITRAM [Suspect]
     Active Substance: TREPROSTINIL
     Indication: Pulmonary arterial hypertension
     Dosage: 1 TABLET OF 5 MG AND 4 TABLETS OF 1 MG
     Route: 048
  6. ORENITRAM [Suspect]
     Active Substance: TREPROSTINIL
     Indication: Pulmonary arterial hypertension
     Route: 048
     Dates: end: 202506
  7. ORENITRAM [Suspect]
     Active Substance: TREPROSTINIL
     Indication: Pulmonary arterial hypertension
     Route: 048
     Dates: start: 20150819
  8. ORENITRAM [Suspect]
     Active Substance: TREPROSTINIL
     Indication: Pulmonary arterial hypertension
     Dosage: 2.5 MG (1 TABLET OF 2.5 MG), Q8H, ORAL USE
     Route: 048
     Dates: start: 202506
  9. NURTEC ODT [Concomitant]
     Active Substance: RIMEGEPANT SULFATE
  10. OPSUMIT [Concomitant]
     Active Substance: MACITENTAN
  11. CEPHALEXIN [Concomitant]
     Active Substance: CEPHALEXIN
  12. OXYGEN [Concomitant]
     Active Substance: OXYGEN
  13. ZYVOX [Concomitant]
     Active Substance: LINEZOLID
  14. ASPIRIN [Concomitant]
     Active Substance: ASPIRIN
  15. FUROSEMIDE [Concomitant]
     Active Substance: FUROSEMIDE
  16. TRAZODONE HCL [Concomitant]
     Active Substance: TRAZODONE HYDROCHLORIDE
  17. ATROPINE\DIPHENOXYLATE [Concomitant]
     Active Substance: ATROPINE\DIPHENOXYLATE
  18. ADCIRCA [Concomitant]
     Active Substance: TADALAFIL
  19. Hair skin nails [Concomitant]
  20. VITAMINS [Concomitant]
     Active Substance: VITAMINS
  21. MELATONIN [Concomitant]
     Active Substance: MELATONIN
  22. SYNTHROID [Concomitant]
     Active Substance: LEVOTHYROXINE SODIUM
  23. INSULIN LISPRO [Concomitant]
     Active Substance: INSULIN LISPRO
  24. IMODIUM [Concomitant]
     Active Substance: LOPERAMIDE HYDROCHLORIDE
  25. ZITHROMAX [Concomitant]
     Active Substance: AZITHROMYCIN DIHYDRATE
  26. TRICOR [Concomitant]
     Active Substance: FENOFIBRATE
  27. ESTRADIOL [Concomitant]
     Active Substance: ESTRADIOL
  28. LOVAZA [Concomitant]
     Active Substance: OMEGA-3-ACID ETHYL ESTERS
  29. CLARITIN [Concomitant]
     Active Substance: LORATADINE
  30. GLUMETZA [Concomitant]
     Active Substance: METFORMIN HYDROCHLORIDE
  31. LYRICA [Concomitant]
     Active Substance: PREGABALIN
  32. PROGESTERONE [Concomitant]
     Active Substance: PROGESTERONE
  33. ATORVASTATIN CALCIUM [Concomitant]
     Active Substance: ATORVASTATIN CALCIUM
  34. LYUMJEV [Concomitant]
     Active Substance: INSULIN LISPRO-AABC
  35. PANTOPRAZOLE SODIUM [Concomitant]
     Active Substance: PANTOPRAZOLE SODIUM
  36. COLESTIPOL HYDROCHLORIDE [Concomitant]
     Active Substance: COLESTIPOL HYDROCHLORIDE
  37. SUCRALFATE [Concomitant]
     Active Substance: SUCRALFATE
  38. ALLOPURINOL [Concomitant]
     Active Substance: ALLOPURINOL
  39. OMEPRAZOLE [Concomitant]
     Active Substance: OMEPRAZOLE
  40. POTASSIUM CHLORIDE [Concomitant]
     Active Substance: POTASSIUM CHLORIDE
  41. MAGNESIUM OXIDE [Concomitant]
     Active Substance: MAGNESIUM OXIDE
  42. Tresiba flextouch (Insulin degludec) [Concomitant]
  43. VERAPAMIL HYDROCHLORIDE [Concomitant]
     Active Substance: VERAPAMIL HYDROCHLORIDE
  44. HUMALOG [Concomitant]
     Active Substance: INSULIN LISPRO
  45. NYSTATIN [Concomitant]
     Active Substance: NYSTATIN
  46. PREDNISONE [Concomitant]
     Active Substance: PREDNISONE
  47. SPIRONOLACTONE [Concomitant]
     Active Substance: SPIRONOLACTONE
  48. Torsemide (Torasemide) [Concomitant]
  49. MOUNJARO [Concomitant]
     Active Substance: TIRZEPATIDE

REACTIONS (3)
  - Weight increased [Unknown]
  - Migraine [Not Recovered/Not Resolved]
  - Dizziness [Unknown]

NARRATIVE: CASE EVENT DATE: 20240601
